FAERS Safety Report 5388748-6 (Version None)
Quarter: 2007Q3

REPORT INFORMATION
  Report Type: 
  Country: None (occurrence: None)
  Receive Date: 20070712
  Receipt Date: 20070628
  Transmission Date: 20080115
  Serious: Yes (Death, Hospitalization)
  Sender: FDA-Public Use
  Company Number: POMP-11112

PATIENT
  Age: 66 Year
  Sex: Male
  Weight: 75 kg

DRUGS (1)
  1. MYOZYME [Suspect]
     Indication: GLYCOGEN STORAGE DISEASE TYPE II
     Dosage: 20 MG/KG Q2WKS IV
     Route: 042
     Dates: start: 20070404, end: 20070522

REACTIONS (9)
  - BACK PAIN [None]
  - CARDIAC FAILURE [None]
  - CONVULSION [None]
  - HYPOTENSION [None]
  - MENTAL STATUS CHANGES [None]
  - OSTEOMYELITIS [None]
  - PNEUMONIA [None]
  - RENAL FAILURE [None]
  - UNRESPONSIVE TO STIMULI [None]
